FAERS Safety Report 9299459 (Version 2)
Quarter: 2013Q2

REPORT INFORMATION
  Report Type: Spontaneous
  Country: BR (occurrence: BR)
  Receive Date: 20130521
  Receipt Date: 20130527
  Transmission Date: 20140414
  Serious: Yes (Other)
  Sender: FDA-Public Use
  Company Number: BR-AMGEN-BRACT2011068127

PATIENT
  Age: 50 Year
  Sex: Female
  Weight: 60 kg

DRUGS (11)
  1. ENBREL [Suspect]
     Indication: ANKYLOSING SPONDYLITIS
     Dosage: 50 MG, WEEKLY
     Route: 058
     Dates: start: 201009
  2. ENBREL [Suspect]
     Dosage: 50 MG, 1X/WEEK
     Route: 058
     Dates: start: 201212
  3. CYCLOSPORINE [Concomitant]
     Indication: ANKYLOSING SPONDYLITIS
     Dosage: 5 MG, UNK
  4. PIROXICAM [Concomitant]
     Indication: ANKYLOSING SPONDYLITIS
     Dosage: 20 MG, 1X/DAY
  5. RANITIDINE [Concomitant]
     Indication: ANKYLOSING SPONDYLITIS
     Dosage: 200 MG, 1X/DAY
  6. RANITIDINE [Concomitant]
     Indication: GASTRIC DISORDER
  7. AMITRIPTYLINE [Concomitant]
     Indication: ANKYLOSING SPONDYLITIS
     Dosage: 10 MG, AS NEEDED (WHEN FEELING PAIN)
  8. AMITRIPTYLINE [Concomitant]
     Indication: PAIN
  9. SULFASALAZINE [Concomitant]
     Dosage: UNK
  10. CYCLOBENZAPRINE [Concomitant]
     Dosage: UNK
  11. SIMVASTATIN [Concomitant]
     Dosage: UNSPECIFIED DOSE, ONCE AT NIGHT
     Dates: start: 201209

REACTIONS (19)
  - Wrong technique in drug usage process [Unknown]
  - Uterine disorder [Unknown]
  - Benign muscle neoplasm [Unknown]
  - Abdominal pain [Unknown]
  - Inflammation [Unknown]
  - Thyroiditis [Unknown]
  - Ear pain [Not Recovered/Not Resolved]
  - Rheumatic disorder [Not Recovered/Not Resolved]
  - Tooth extraction [Unknown]
  - Gingival swelling [Unknown]
  - Umbilical hernia [Unknown]
  - Inguinal hernia [Unknown]
  - Retching [Unknown]
  - Tremor [Unknown]
  - Tooth disorder [Unknown]
  - Lymphadenopathy [Not Recovered/Not Resolved]
  - Injection site discolouration [Unknown]
  - Injection site pain [Unknown]
  - Pharyngitis [Unknown]
